FAERS Safety Report 6073266-2 (Version None)
Quarter: 2009Q1

REPORT INFORMATION
  Report Type: 
  Country: None (occurrence: None)
  Receive Date: 20090205
  Receipt Date: 20090123
  Transmission Date: 20090719
  Serious: Yes (Hospitalization, Other)
  Sender: FDA-Public Use
  Company Number: 2007-02451

PATIENT
  Age: 61 Year
  Sex: Female
  Weight: 58 kg

DRUGS (27)
  1. VELCADE [Suspect]
     Indication: MULTIPLE MYELOMA
     Dosage: 2 MG, INTRAVENOUS; 1.5 MG, INTRAVENOUS; 0.5 MG, INTRAVENOUS; 2 G, INTRAVENOUS
     Route: 042
     Dates: start: 20070515, end: 20070922
  2. VELCADE [Suspect]
     Indication: MULTIPLE MYELOMA
     Dosage: 2 MG, INTRAVENOUS; 1.5 MG, INTRAVENOUS; 0.5 MG, INTRAVENOUS; 2 G, INTRAVENOUS
     Route: 042
     Dates: start: 20071004, end: 20071220
  3. VELCADE [Suspect]
     Indication: MULTIPLE MYELOMA
     Dosage: 2 MG, INTRAVENOUS; 1.5 MG, INTRAVENOUS; 0.5 MG, INTRAVENOUS; 2 G, INTRAVENOUS
     Route: 042
     Dates: start: 20071206, end: 20071220
  4. ANTIBIOTICS() [Suspect]
     Indication: DRUG USE FOR UNKNOWN INDICATION
  5. PREDNISOLONE [Suspect]
     Indication: MULTIPLE MYELOMA
     Dosage: 30 MG, ORAL
     Route: 048
     Dates: start: 20070515, end: 20070712
  6. MAXIPIME [Suspect]
     Indication: PAROTITIS
     Dosage: 1 G, INTRAVENOUS
     Route: 042
     Dates: start: 20070519, end: 20070519
  7. MAXIPIME [Suspect]
     Indication: PAROTITIS
     Dosage: 1 G, INTRAVENOUS
     Route: 042
     Dates: start: 20070520, end: 20070522
  8. SOLDEM [Concomitant]
  9. ZOLPIDEM TARTRATE [Concomitant]
  10. FAMOTIDINE [Concomitant]
  11. CATAPLASMATA [Concomitant]
  12. RINDERON-VG (GENTAMICIN SULFATE, BETAMETHASONE VALERATE) [Concomitant]
  13. CLOBETASOL PROPIONATE [Concomitant]
  14. TOUGHMAC E (ENZYMES NOS) [Concomitant]
  15. MAGNESIUM OXIDE (MAGNESIUM OXIDE) [Concomitant]
  16. DIOVANE (VALSARTAN) [Concomitant]
  17. BIOFERMIN (STREPTOCOCCUS FAECALIS, LACTOBACILLUS ACIDOPHILUS, BACILLUS [Concomitant]
  18. OMEPRAZOLE [Concomitant]
  19. LENDORM [Concomitant]
  20. ALLOPURINOL [Concomitant]
  21. AZUNOL 9SODIUM GUALENATE) [Concomitant]
  22. GARENOXACIN (GARENOXACIN) [Concomitant]
  23. LOXONIN (LOXOPROFEN SODIUM) [Concomitant]
  24. SEISHOKU (SODIUM CHLORIDE) [Concomitant]
  25. KYTRIL [Concomitant]
  26. ADRIAMYCIN PFS [Concomitant]
  27. ONCOVIN [Concomitant]

REACTIONS (13)
  - ASPERGILLOSIS [None]
  - BACK PAIN [None]
  - COUGH [None]
  - DIARRHOEA [None]
  - DRUG ERUPTION [None]
  - ERYTHEMA [None]
  - GASTRITIS [None]
  - HERPES ZOSTER [None]
  - HYPERTENSION [None]
  - NEUTROPHIL COUNT DECREASED [None]
  - PAROTITIS [None]
  - PYREXIA [None]
  - TRANSPLANT [None]
